FAERS Safety Report 4912832-1 (Version None)
Quarter: 2006Q1

REPORT INFORMATION
  Report Type: 
  Country: None (occurrence: None)
  Receive Date: 20060210
  Receipt Date: 20060202
  Transmission Date: 20060701
  Serious: Yes (Other)
  Sender: FDA-Public Use
  Company Number: B0409226A

PATIENT
  Age: 61 Year
  Sex: Male

DRUGS (5)
  1. COREG [Suspect]
     Indication: CARDIOMYOPATHY
     Dosage: 25 MG / ORAL
     Route: 048
     Dates: end: 20051221
  2. ASPIRIN [Concomitant]
  3. COVERSYL PLUS [Concomitant]
  4. ATORVASTATIN CALCIUM [Concomitant]
  5. NITROGLYCERIN [Concomitant]

REACTIONS (1)
  - HEPATIC ENZYME ABNORMAL [None]
